FAERS Safety Report 9807073 (Version 3)
Quarter: 2014Q1

REPORT INFORMATION
  Report Type: Spontaneous
  Country: US (occurrence: US)
  Receive Date: 20140110
  Receipt Date: 20140213
  Transmission Date: 20141002
  Serious: Yes (Hospitalization)
  Sender: FDA-Public Use
  Company Number: US-ROCHE-1330486

PATIENT
  Sex: Female

DRUGS (3)
  1. ACTIVASE [Suspect]
     Indication: DEEP VEIN THROMBOSIS
     Route: 042
     Dates: start: 20140106, end: 20140106
  2. CATHFLO ACTIVASE [Suspect]
     Indication: DEEP VEIN THROMBOSIS
     Route: 042
     Dates: start: 20140107, end: 20140107
  3. CATHFLO ACTIVASE [Suspect]
     Indication: PULMONARY EMBOLISM

REACTIONS (2)
  - Blood fibrinogen decreased [Unknown]
  - Product quality issue [Unknown]
